FAERS Safety Report 7645942-9 (Version None)
Quarter: 2011Q3

REPORT INFORMATION
  Report Type: 
  Country: None (occurrence: None)
  Receive Date: 20110729
  Receipt Date: 20110720
  Transmission Date: 20111222
  Serious: Yes (Disabling)
  Sender: FDA-Public Use
  Company Number: FR-GENENTECH-301627

PATIENT
  Sex: Male

DRUGS (20)
  1. MABTHERA [Suspect]
     Indication: HODGKIN'S DISEASE
     Dosage: 650 MG, SINGLE
     Route: 042
     Dates: start: 20091223, end: 20091223
  2. ONCOVIN [Suspect]
     Dosage: 2 MG, UNK
     Route: 042
     Dates: start: 20100222, end: 20100222
  3. FASTURTEC [Concomitant]
     Indication: PRODUCT USED FOR UNKNOWN INDICATION
     Dosage: UNK
  4. VEPESID [Suspect]
     Dosage: 220 MG, UNK
     Route: 042
     Dates: start: 20100215, end: 20100215
  5. ATARAX [Concomitant]
     Indication: PRODUCT USED FOR UNKNOWN INDICATION
     Dosage: UNK
  6. LEXOMIL [Concomitant]
     Indication: PRODUCT USED FOR UNKNOWN INDICATION
     Dosage: UNK
  7. ONCOVIN [Suspect]
     Dosage: 2 MG, UNK
     Route: 042
     Dates: start: 20100128, end: 20100128
  8. VEPESID [Suspect]
     Dosage: 220 MG, UNK
     Route: 042
     Dates: start: 20100217, end: 20100219
  9. DOXORUBICIN HCL [Suspect]
     Indication: HODGKIN'S DISEASE
     Dosage: 68 MG, SINGLE
     Route: 042
     Dates: start: 20100215, end: 20100215
  10. CYCLOPHOSPHAMIDE [Suspect]
     Indication: HODGKIN'S DISEASE
     Dosage: 520 MG, SINGLE
     Route: 042
     Dates: start: 20091223, end: 20091223
  11. PREDNISOLONE [Suspect]
     Indication: HODGKIN'S DISEASE
     Dosage: UNK
     Route: 042
     Dates: start: 20091223, end: 20091223
  12. ONCOVIN [Suspect]
     Indication: HODGKIN'S DISEASE
     Dosage: 1.75 MG, SINGLE
     Route: 042
     Dates: start: 20091223, end: 20091223
  13. DOXORUBICIN HCL [Suspect]
     Dosage: 68 MG, UNK
     Route: 042
     Dates: start: 20100301, end: 20100301
  14. LASIX [Concomitant]
     Indication: PRODUCT USED FOR UNKNOWN INDICATION
     Dosage: UNK
  15. VEPESID [Suspect]
     Indication: HODGKIN'S DISEASE
     Dosage: 210 MG, UNK
     Route: 042
     Dates: start: 20100113, end: 20100117
  16. ONCOVIN [Suspect]
     Dosage: 2 MG, UNK
     Route: 042
     Dates: start: 20100120, end: 20100120
  17. BACTRIM [Concomitant]
     Indication: PRODUCT USED FOR UNKNOWN INDICATION
     Dosage: UNK
  18. ONCOVIN [Suspect]
     Dosage: 2 MG, UNK
     Route: 042
     Dates: start: 20100301, end: 20100301
  19. LOVENOX [Concomitant]
     Indication: PRODUCT USED FOR UNKNOWN INDICATION
     Dosage: UNK
  20. ACETAMINOPHEN [Concomitant]
     Indication: PRODUCT USED FOR UNKNOWN INDICATION
     Dosage: UNK

REACTIONS (5)
  - DYSARTHRIA [None]
  - DISORIENTATION [None]
  - NERVOUS SYSTEM DISORDER [None]
  - MEMORY IMPAIRMENT [None]
  - TREMOR [None]
